FAERS Safety Report 5781371-0 (Version None)
Quarter: 2008Q2

REPORT INFORMATION
  Report Type: 
  Country: None (occurrence: None)
  Receive Date: 20080619
  Receipt Date: 20080603
  Transmission Date: 20081010
  Serious: Yes (Disabling)
  Sender: FDA-Public Use
  Company Number: APP200800151

PATIENT
  Age: 58 Year
  Sex: Female
  Weight: 67.1 kg

DRUGS (4)
  1. SENSORCAINE-MPF WITH EPINEPHRINE (BUPIVACAINE HYDROCHLORIDE) [Suspect]
     Indication: MUSCULOSKELETAL PAIN
     Dosage: SEE IMAGE
     Dates: start: 20040322, end: 20040322
  2. SENSORCAINE-MPF WITH EPINEPHRINE (BUPIVACAINE HYDROCHLORIDE) [Suspect]
     Indication: MUSCULOSKELETAL PAIN
     Dosage: SEE IMAGE
     Dates: start: 20040322
  3. DON JOY PAIN PUMP [Suspect]
     Indication: MUSCULOSKELETAL PAIN
     Dates: start: 20040322
  4. ANCEF [Concomitant]

REACTIONS (11)
  - CHONDROLYSIS [None]
  - CHONDROPATHY [None]
  - JOINT INJURY [None]
  - JOINT RANGE OF MOTION DECREASED [None]
  - MUSCLE ATROPHY [None]
  - MUSCULOSKELETAL PAIN [None]
  - OSTEOARTHRITIS [None]
  - OSTEOMYELITIS [None]
  - OSTEONECROSIS [None]
  - TENDON RUPTURE [None]
  - TRAUMATIC ARTHRITIS [None]
